FAERS Safety Report 7533192-6 (Version None)
Quarter: 2011Q2

REPORT INFORMATION
  Report Type: 
  Country: None (occurrence: None)
  Receive Date: 20110608
  Receipt Date: 20030804
  Transmission Date: 20111010
  Serious: Yes (Death)
  Sender: FDA-Public Use
  Company Number: PHFR2003GB02299

PATIENT
  Sex: Female

DRUGS (1)
  1. CLOZAPINE [Suspect]
     Indication: SCHIZOPHRENIA
     Route: 048
     Dates: start: 20000217

REACTIONS (5)
  - PULMONARY OEDEMA [None]
  - HYPONATRAEMIA [None]
  - PULMONARY HAEMORRHAGE [None]
  - DYSPNOEA [None]
  - CIRCULATORY COLLAPSE [None]
